FAERS Safety Report 23839427 (Version 2)
Quarter: 2024Q2

REPORT INFORMATION
  Report Type: Spontaneous
  Country: US (occurrence: US)
  Receive Date: 20240510
  Receipt Date: 20240530
  Transmission Date: 20240715
  Serious: Yes (Other)
  Sender: FDA-Public Use
  Company Number: US-CELLTRION INC.-2024US004998

PATIENT

DRUGS (6)
  1. INFLECTRA [Suspect]
     Active Substance: INFLIXIMAB-DYYB
     Indication: Crohn^s disease
     Dosage: 250 ML ONE EVERY 8 WKS
  2. PAXLOVID [Suspect]
     Active Substance: NIRMATRELVIR\RITONAVIR
     Indication: COVID-19
     Dosage: FIRST DAY/THREE TABLETS AT THE SAME TIME FROM THE MORNING DOSE PORTION OF BLISTER PACK / EVENING DOS
     Route: 048
     Dates: start: 20231210
  3. PAXLOVID [Suspect]
     Active Substance: NIRMATRELVIR\RITONAVIR
     Dosage: SECOND DAY/THREE TABLETS AT THE SAME TIME FROM THE MORNING DOSE PORTION OF BLISTER PACK / EVENING DO
     Route: 048
  4. PAXLOVID [Suspect]
     Active Substance: NIRMATRELVIR\RITONAVIR
     Dosage: THIRD DAY/THREE TABLETS AT THE SAME TIME FROM THE MORNING DOSE PORTION OF BLISTER PACK / EVENING DOS
     Route: 048
     Dates: end: 20231213
  5. CARVEDILOL [Concomitant]
     Active Substance: CARVEDILOL
     Indication: Blood pressure measurement
     Dosage: 3.125 MILLIGRAMS, TWICE A DAY
     Route: 048
  6. ATORVASTATIN [Concomitant]
     Active Substance: ATORVASTATIN
     Indication: Blood cholesterol
     Dosage: 40 MG ONE PER DAY

REACTIONS (12)
  - COVID-19 [Recovered/Resolved]
  - Immunodeficiency [Recovered/Resolved]
  - Renal pain [Unknown]
  - Drug interaction [Recovered/Resolved]
  - Eye swelling [Recovered/Resolved]
  - Lacrimation increased [Recovered/Resolved]
  - Discomfort [Recovered/Resolved]
  - Skin exfoliation [Recovered/Resolved]
  - Malaise [Unknown]
  - Rash [Unknown]
  - Adverse drug reaction [Unknown]
  - Incorrect drug administration rate [Recovered/Resolved]

NARRATIVE: CASE EVENT DATE: 20231210
